FAERS Safety Report 11873394 (Version 1)
Quarter: 2015Q4

REPORT INFORMATION
  Report Type: Spontaneous
  Country: ES (occurrence: ES)
  Receive Date: 20151228
  Receipt Date: 20151228
  Transmission Date: 20160305
  Serious: Yes (Congenital Anomaly)
  Sender: FDA-Public Use
  Company Number: ES-SUNOVION-2015SUN000009

PATIENT

DRUGS (1)
  1. ZEBINIX [Suspect]
     Active Substance: ESLICARBAZEPINE ACETATE
     Indication: PARTIAL SEIZURES
     Dosage: 1600 MG, UNK
     Route: 064
     Dates: start: 2014, end: 20150217

REACTIONS (1)
  - Congenital knee dislocation [Not Recovered/Not Resolved]

NARRATIVE: CASE EVENT DATE: 20150217
